FAERS Safety Report 12479475 (Version 1)
Quarter: 2016Q2

REPORT INFORMATION
  Report Type: Spontaneous
  Country: US (occurrence: None)
  Receive Date: 20160617
  Receipt Date: 20160617
  Transmission Date: 20160815
  Serious: Yes (Life-Threatening, Hospitalization)
  Sender: FDA-Public Use
  Company Number: None

PATIENT
  Age: 64 Year
  Sex: Male
  Weight: 58.3 kg

DRUGS (1)
  1. VARENICLINE 1 MG [Suspect]
     Active Substance: VARENICLINE
     Indication: SMOKING CESSATION THERAPY
     Route: 048
     Dates: start: 20160202, end: 20160227

REACTIONS (4)
  - Suicidal ideation [None]
  - Confusional state [None]
  - Memory impairment [None]
  - Nightmare [None]

NARRATIVE: CASE EVENT DATE: 20160301
